FAERS Safety Report 8999950 (Version 1)
Quarter: 2013Q1

REPORT INFORMATION
  Report Type: Spontaneous
  Country: IN (occurrence: IN)
  Receive Date: 20130102
  Receipt Date: 20130102
  Transmission Date: 20140127
  Serious: Yes (Hospitalization)
  Sender: FDA-Public Use
  Company Number: IN-ASTELLAS-2012JP012214

PATIENT
  Age: 59 Year
  Sex: Male

DRUGS (7)
  1. TACROLIMUS [Suspect]
     Indication: IMMUNOSUPPRESSION
     Dosage: 0.3 MG/KG, UNKNOWN/D
     Route: 065
  2. TACROLIMUS [Suspect]
     Dosage: 0.15 MG/KG, UNKNOWN/D
     Route: 065
  3. PREDNISOLONE [Suspect]
     Indication: IMMUNOSUPPRESSION
     Dosage: 0.5 MG/KG, UNKNOWN/D
     Route: 065
  4. MYCOPHENOLATE MOFETIL [Suspect]
     Indication: IMMUNOSUPPRESSION
     Dosage: 1080 MG, UNKNOWN/D
     Route: 065
  5. ATG RABBIT [Suspect]
     Route: 065
  6. ANTIBIOTICS [Concomitant]
     Indication: GASTROENTERITIS
     Route: 065
  7. ANTIFUNGALS [Concomitant]
     Indication: OESOPHAGEAL CANDIDIASIS
     Route: 065

REACTIONS (14)
  - Demyelinating polyneuropathy [Unknown]
  - Gastroenteritis [None]
  - Oesophageal candidiasis [None]
  - Complications of transplanted kidney [None]
  - Cytomegalovirus infection [None]
  - Blood creatinine increased [None]
  - Leukocytosis [None]
  - Gangrene [None]
  - Arm amputation [None]
  - Polyomavirus-associated nephropathy [None]
  - Atypical pneumonia [None]
  - Blood urea increased [None]
  - Haemodialysis [None]
  - Klebsiella test positive [None]
